FAERS Safety Report 7638302-8 (Version None)
Quarter: 2011Q3

REPORT INFORMATION
  Report Type: 
  Country: None (occurrence: None)
  Receive Date: 20110727
  Receipt Date: 20110727
  Transmission Date: 20111222
  Serious: Yes (Hospitalization)
  Sender: FDA-Public Use
  Company Number: None

PATIENT
  Age: 76 Year
  Sex: Male
  Weight: 82.553 kg

DRUGS (8)
  1. ADVAIR DISKUS 100/50 [Suspect]
     Indication: CHRONIC OBSTRUCTIVE PULMONARY DISEASE
     Dates: start: 20100113, end: 20110726
  2. LANSOPRAZOLE [Concomitant]
  3. LEXAPRO [Concomitant]
  4. ASPIRIN [Concomitant]
  5. TERAZOSIN HCL [Concomitant]
  6. ATACAND [Concomitant]
  7. ZETIA [Concomitant]
  8. VIAGRA [Concomitant]

REACTIONS (2)
  - CHEST PAIN [None]
  - ATRIAL FIBRILLATION [None]
